FAERS Safety Report 21292731 (Version 1)
Quarter: 2022Q3

REPORT INFORMATION
  Report Type: Spontaneous
  Country: NL (occurrence: NL)
  Receive Date: 20220905
  Receipt Date: 20220905
  Transmission Date: 20221027
  Serious: Yes (Hospitalization)
  Sender: FDA-Public Use
  Company Number: None

PATIENT
  Sex: Female
  Weight: 70 kg

DRUGS (1)
  1. GEMCITABINE [Suspect]
     Active Substance: GEMCITABINE
     Indication: Product used for unknown indication
     Dosage: 1 CURE, GEMCITABINE INFOPL CONC 100MG / ML / BRAND NAME NOT SPECIFIED, UNIT DOSE :1 DF, DURATION : 2
     Dates: start: 20220808, end: 20220810

REACTIONS (1)
  - Pancreatitis acute [Recovered/Resolved]
